FAERS Safety Report 8914165 (Version 2)
Quarter: 2012Q4

REPORT INFORMATION
  Report Type: 
  Country: GB (occurrence: GB)
  Receive Date: 20121119
  Receipt Date: 20121204
  Transmission Date: 20130627
  Serious: Yes (Hospitalization)
  Sender: FDA-Public Use
  Company Number: GB-RANBAXY-2012R1-62001

PATIENT
  Age: 5 Month
  Sex: Female

DRUGS (2)
  1. CETIRIZINE [Suspect]
     Indication: PRODUCT USED FOR UNKNOWN INDICATION
     Dosage: UNK
     Route: 065
     Dates: start: 20120417, end: 20120422
  2. RANITIDINE [Suspect]
     Indication: PRODUCT USED FOR UNKNOWN INDICATION
     Dosage: 1 ml, tid
     Route: 048

REACTIONS (5)
  - Decreased appetite [Recovering/Resolving]
  - Crying [Recovered/Resolved]
  - Screaming [Recovered/Resolved]
  - Drug dispensing error [Recovered/Resolved with Sequelae]
  - Gastric ulcer [Recovered/Resolved with Sequelae]
